FAERS Safety Report 8156284-X (Version None)
Quarter: 2012Q1

REPORT INFORMATION
  Report Type: 
  Country: None (occurrence: None)
  Receive Date: 20120222
  Receipt Date: 20120219
  Transmission Date: 20120608
  Serious: Yes (Death, Life-Threatening, Hospitalization)
  Sender: FDA-Public Use
  Company Number: IL-B.I. PHARMACEUTICALS,INC./RIDGEFIELD-2012-AP-00046RI

PATIENT
  Age: 82 Year
  Sex: Female

DRUGS (5)
  1. RAMIPRIL [Concomitant]
     Indication: HYPERTENSION
     Dosage: 5 MG
     Route: 048
     Dates: end: 20120113
  2. PRADAXA [Suspect]
     Indication: CEREBROVASCULAR ACCIDENT
     Dosage: 220 MG
     Route: 048
     Dates: start: 20120107, end: 20120113
  3. PRADAXA [Suspect]
     Indication: ATRIAL FIBRILLATION
  4. LIPITOR [Concomitant]
     Indication: HYPERLIPIDAEMIA
     Dosage: 40 MG
     Route: 048
  5. NORMITEN [Concomitant]
     Indication: HYPERTENSION
     Dosage: 50 MG
     Route: 048

REACTIONS (6)
  - MULTI-ORGAN FAILURE [None]
  - RECTAL HAEMORRHAGE [None]
  - THROMBOSIS [None]
  - RENAL FAILURE ACUTE [None]
  - PYREXIA [None]
  - DEEP VEIN THROMBOSIS [None]
